FAERS Safety Report 5822922-7 (Version None)
Quarter: 2008Q3

REPORT INFORMATION
  Report Type: 
  Country: None (occurrence: None)
  Receive Date: 20080724
  Receipt Date: 20080724
  Transmission Date: 20090109
  Serious: Yes (Disabling)
  Sender: FDA-Public Use
  Company Number: None

PATIENT
  Age: 66 Year
  Sex: Male
  Weight: 96.9 kg

DRUGS (11)
  1. LOVENOX [Suspect]
     Indication: ANTICOAGULANT THERAPY
     Dosage: 80 MG Q12HRS SQ
     Route: 058
     Dates: start: 20080711, end: 20080717
  2. LOVENOX [Suspect]
     Indication: DEEP VEIN THROMBOSIS
     Dosage: 80 MG Q12HRS SQ
     Route: 058
     Dates: start: 20080711, end: 20080717
  3. PLAVIX [Suspect]
     Indication: ANTICOAGULANT THERAPY
     Dosage: 75MG DAILY PO
     Route: 048
     Dates: start: 20080711, end: 20080717
  4. PLAVIX [Suspect]
     Indication: DEEP VEIN THROMBOSIS
     Dosage: 75MG DAILY PO
     Route: 048
     Dates: start: 20080711, end: 20080717
  5. APAP TAB [Concomitant]
  6. PROVENTIL NEBULIZER [Concomitant]
  7. NEXIUM [Concomitant]
  8. LORAZEPAM [Concomitant]
  9. CELLCEPT [Concomitant]
  10. ZOCOR [Concomitant]
  11. FLOMAX [Concomitant]

REACTIONS (1)
  - RETROPERITONEAL HAEMORRHAGE [None]
